FAERS Safety Report 8819850 (Version 4)
Quarter: 2013Q2

REPORT INFORMATION
  Report Type: Report from Study
  Country: None (occurrence: PR)
  Receive Date: 20121001
  Receipt Date: 20130418
  Transmission Date: 20140414
  Serious: No
  Sender: FDA-Public Use
  Company Number: PR-ABBOTT-12P-131-0933137-00

PATIENT
  Age: 43 Year
  Sex: Male
  Weight: 94.43 kg

DRUGS (7)
  1. HUMIRA [Suspect]
     Indication: PSORIASIS
     Route: 058
     Dates: start: 2011, end: 201205
  2. HUMIRA [Suspect]
     Route: 058
     Dates: start: 201206
  3. ENALAPRIL [Concomitant]
     Indication: HYPERTENSION
     Route: 048
  4. SIMVASTATIN [Concomitant]
     Indication: HYPERCHOLESTEROLAEMIA
     Route: 048
  5. FIORICET [Concomitant]
     Indication: HEADACHE
     Dosage: 1 TABLET BID PRN
     Route: 048
  6. CREAM OINTMENT [Concomitant]
     Indication: PSORIASIS
     Route: 061
  7. UNKNOWN MEDICATION [Concomitant]
     Indication: PSORIASIS
     Route: 042

REACTIONS (11)
  - Dyspepsia [Recovered/Resolved with Sequelae]
  - Tremor [Recovered/Resolved]
  - Salivary hypersecretion [Recovered/Resolved]
  - Asthenia [Recovered/Resolved]
  - Hypertension [Recovered/Resolved]
  - Chest pain [Unknown]
  - Injection site mass [Recovered/Resolved]
  - Injection site mass [Recovered/Resolved]
  - Hypersensitivity [Recovered/Resolved]
  - Pruritus [Recovered/Resolved]
  - Drug ineffective [Not Recovered/Not Resolved]
